FAERS Safety Report 7527289-4 (Version None)
Quarter: 2011Q2

REPORT INFORMATION
  Report Type: 
  Country: None (occurrence: None)
  Receive Date: 20110603
  Receipt Date: 20110603
  Transmission Date: 20111010
  Serious: Yes (Life-Threatening, Hospitalization, Other)
  Sender: FDA-Public Use
  Company Number: None

PATIENT
  Age: 52 Year
  Sex: Male
  Weight: 88.4514 kg

DRUGS (2)
  1. VIOXX [Suspect]
     Indication: RHEUMATOID ARTHRITIS
     Dosage: 50MG THREEFOURTIMEDAILY PO
     Route: 048
     Dates: start: 20010201, end: 20031225
  2. ROFECOXIB [Suspect]
     Indication: RHEUMATOID ARTHRITIS
     Dosage: WHEN OTHE OF VIOXX SAME DOSE PO
     Route: 048
     Dates: start: 20010101, end: 20031223

REACTIONS (3)
  - DEPENDENCE [None]
  - PRODUCT QUALITY ISSUE [None]
  - ABDOMINAL PAIN UPPER [None]
